FAERS Safety Report 9190400 (Version 1)
Quarter: 2013Q1

REPORT INFORMATION
  Report Type: Spontaneous
  Country: US (occurrence: None)
  Receive Date: 20130325
  Receipt Date: 20130325
  Transmission Date: 20140127
  Serious: Yes (Life-Threatening, Disabling)
  Sender: FDA-Public Use
  Company Number: None

PATIENT
  Sex: Female
  Weight: 68.04 kg

DRUGS (1)
  1. NITROFURANTOIN [Suspect]
     Indication: URINARY TRACT INFECTION
     Dosage: 100 MG  3 X^S WEEKLY  PO
     Route: 048
     Dates: start: 20090101, end: 20120510

REACTIONS (5)
  - Interstitial lung disease [None]
  - Stress [None]
  - Cardiac disorder [None]
  - Heart rate increased [None]
  - Anhedonia [None]
